FAERS Safety Report 14104026 (Version 7)
Quarter: 2018Q4

REPORT INFORMATION
  Report Type: Spontaneous
  Country: JP (occurrence: JP)
  Receive Date: 20171018
  Receipt Date: 20181017
  Transmission Date: 20190204
  Serious: Yes (Death, Hospitalization, Other)
  Sender: FDA-Public Use
  Company Number: JP-009507513-1710JPN001709J

PATIENT
  Age: 79 Year
  Sex: Female
  Weight: 46 kg

DRUGS (13)
  1. ZOLPIDEM TARTRATE. [Concomitant]
     Active Substance: ZOLPIDEM TARTRATE
     Dosage: 5 MG, QD
     Route: 048
     Dates: end: 20170726
  2. SODIUM PICOSULFATE HYDRATE [Concomitant]
     Active Substance: SODIUM PICOSULFATE
     Dosage: UNK UNK, QD
     Route: 048
     Dates: start: 20170618, end: 20170726
  3. NAUZELIN [Concomitant]
     Active Substance: DOMPERIDONE
     Indication: NON-SMALL CELL LUNG CANCER
     Dosage: 10 MG, TID
     Route: 048
     Dates: start: 20170618, end: 20170726
  4. CARBOCISTEINE [Concomitant]
     Active Substance: CARBOCYSTEINE
     Indication: NON-SMALL CELL LUNG CANCER
     Dosage: 500 MG, TID
     Route: 048
     Dates: start: 20170523, end: 20170726
  5. PAXIL CR [Concomitant]
     Active Substance: PAROXETINE HYDROCHLORIDE
     Dosage: 25 MG, QD
     Route: 048
     Dates: end: 20170620
  6. LOXONIN [Concomitant]
     Active Substance: LOXOPROFEN SODIUM
     Indication: NON-SMALL CELL LUNG CANCER
     Dosage: 60 MG, TID
     Route: 048
     Dates: start: 20170530, end: 20170726
  7. SULPIRIDE [Concomitant]
     Active Substance: SULPIRIDE
     Dosage: 150 MG, UNK
     Route: 048
  8. OXYCODONE [Concomitant]
     Active Substance: OXYCODONE
     Indication: NON-SMALL CELL LUNG CANCER
     Dosage: 5 MG, TID
     Route: 048
     Dates: start: 20170616, end: 20170618
  9. REBAMIPIDE [Concomitant]
     Active Substance: REBAMIPIDE
     Indication: NON-SMALL CELL LUNG CANCER
     Dosage: 100 MG, TID
     Route: 048
     Dates: start: 20170530, end: 20170726
  10. OXINORM (OXYCODONE HYDROCHLORIDE) [Concomitant]
     Active Substance: OXYCODONE HYDROCHLORIDE
     Indication: NON-SMALL CELL LUNG CANCER
     Dosage: 2.5 MG, PRN
     Route: 048
     Dates: start: 20170616, end: 20170618
  11. KEYTRUDA [Suspect]
     Active Substance: PEMBROLIZUMAB
     Indication: LUNG ADENOCARCINOMA
     Dosage: 200 MG, Q3W
     Route: 041
     Dates: start: 20170615, end: 20170615
  12. AMBROXOL HYDROCHLORIDE [Concomitant]
     Active Substance: AMBROXOL HYDROCHLORIDE
     Indication: NON-SMALL CELL LUNG CANCER
     Dosage: 15 MG, TID
     Route: 048
     Dates: start: 20170523, end: 20170726
  13. PITAVASTATIN CALCIUM [Concomitant]
     Active Substance: PITAVASTATIN CALCIUM
     Dosage: 1 MG, QD
     Route: 048
     Dates: end: 20170620

REACTIONS (3)
  - Oedema [Recovered/Resolved]
  - Interstitial lung disease [Fatal]
  - Herpes zoster [Recovered/Resolved]

NARRATIVE: CASE EVENT DATE: 20170618
